FAERS Safety Report 17208243 (Version 1)
Quarter: 2019Q4

REPORT INFORMATION
  Report Type: Spontaneous
  Country: US (occurrence: US)
  Receive Date: 20191227
  Receipt Date: 20191227
  Transmission Date: 20200122
  Serious: No
  Sender: FDA-Public Use
  Company Number: US-SCILEX PHARMACEUTICALS INC.-2019SCX00075

PATIENT
  Age: 63 Year
  Sex: Female
  Weight: 42.63 kg

DRUGS (1)
  1. ZTLIDO [Suspect]
     Active Substance: LIDOCAINE
     Indication: PAIN
     Dosage: 1 DOSAGE UNITS, ONCE FOR 12 HOURS
     Route: 061
     Dates: start: 20190913, end: 201909

REACTIONS (1)
  - Application site bruise [Recovered/Resolved]

NARRATIVE: CASE EVENT DATE: 201909
